FAERS Safety Report 6821424-9 (Version None)
Quarter: 2010Q3

REPORT INFORMATION
  Report Type: 
  Country: None (occurrence: None)
  Receive Date: 20100707
  Receipt Date: 20081023
  Transmission Date: 20110219
  Serious: No
  Sender: FDA-Public Use
  Company Number: US-PFIZER INC-2008089493

PATIENT
  Sex: Female

DRUGS (1)
  1. ZOLOFT [Suspect]

REACTIONS (4)
  - ABDOMINAL DISTENSION [None]
  - AFFECTIVE DISORDER [None]
  - DRUG INEFFECTIVE [None]
  - FIBROMYALGIA [None]
